FAERS Safety Report 4823477-6 (Version None)
Quarter: 2005Q4

REPORT INFORMATION
  Report Type: 
  Country: None (occurrence: None)
  Receive Date: 20051109
  Receipt Date: 20051031
  Transmission Date: 20060501
  Serious: Yes (Hospitalization)
  Sender: FDA-Public Use
  Company Number: FR-BRACCO-BRO-009333

PATIENT
  Age: 57 Year
  Sex: Male

DRUGS (2)
  1. MULTIHANCE [Suspect]
     Route: 042
     Dates: start: 20050928, end: 20050928
  2. MULTIHANCE [Suspect]
     Route: 042
     Dates: start: 20050928, end: 20050928

REACTIONS (6)
  - AGITATION [None]
  - CYANOSIS [None]
  - FEELING HOT [None]
  - HYPERHIDROSIS [None]
  - LOSS OF CONSCIOUSNESS [None]
  - URINARY INCONTINENCE [None]
